FAERS Safety Report 21192722 (Version 1)
Quarter: 2022Q3

REPORT INFORMATION
  Report Type: Spontaneous
  Country: US (occurrence: US)
  Receive Date: 20220810
  Receipt Date: 20220810
  Transmission Date: 20221027
  Serious: No
  Sender: FDA-Public Use
  Company Number: US-TEVA-2022-US-2058707

PATIENT
  Age: 29 Year
  Sex: Female

DRUGS (1)
  1. JUNEL [Suspect]
     Active Substance: ETHINYL ESTRADIOL\NORETHINDRONE ACETATE
     Indication: Product used for unknown indication
     Dosage: STRENGTH: 1-0.02 MG-MG
     Dates: start: 202204, end: 20220720

REACTIONS (4)
  - Eye disorder [Not Recovered/Not Resolved]
  - Visual impairment [Not Recovered/Not Resolved]
  - Alopecia [Not Recovered/Not Resolved]
  - Hair growth abnormal [Not Recovered/Not Resolved]

NARRATIVE: CASE EVENT DATE: 20220501
